FAERS Safety Report 24210821 (Version 1)
Quarter: 2024Q3

REPORT INFORMATION
  Report Type: Report from Study
  Country: US (occurrence: US)
  Receive Date: 20240814
  Receipt Date: 20240814
  Transmission Date: 20241017
  Serious: Yes (Hospitalization, Other)
  Sender: ABBVIE
  Company Number: US-ABBVIE-5876342

PATIENT
  Sex: Male

DRUGS (1)
  1. HUMIRA [Suspect]
     Active Substance: ADALIMUMAB
     Indication: Ankylosing spondylitis
     Route: 058

REACTIONS (8)
  - Fall [Unknown]
  - Rib fracture [Unknown]
  - Brain fog [Unknown]
  - Cerebral haemorrhage [Unknown]
  - Spinal column injury [Unknown]
  - Concussion [Unknown]
  - Somnolence [Unknown]
  - Skin laceration [Unknown]

NARRATIVE: CASE EVENT DATE: 20240101
